FAERS Safety Report 4816700-5 (Version None)
Quarter: 2005Q4

REPORT INFORMATION
  Report Type: 
  Country: None (occurrence: None)
  Receive Date: 20051101
  Receipt Date: 20051020
  Transmission Date: 20060501
  Serious: Yes (Other)
  Sender: FDA-Public Use
  Company Number: PHEH2005US11695

PATIENT
  Age: 72 Year
  Sex: Female
  Weight: 70 kg

DRUGS (6)
  1. LOPRESSOR [Suspect]
     Route: 048
     Dates: start: 20050627, end: 20050710
  2. VASOTEC [Concomitant]
     Route: 048
     Dates: start: 20050627, end: 20050710
  3. PLAVIX [Concomitant]
     Indication: MYOCARDIAL INFARCTION
     Dosage: 75 MG, QD
     Route: 048
     Dates: start: 20050627, end: 20050717
  4. PLAVIX [Concomitant]
     Route: 048
     Dates: start: 20050720
  5. ZOCOR [Suspect]
     Dates: start: 20050627, end: 20050719
  6. NEXIUM [Concomitant]
     Indication: HIATUS HERNIA
     Route: 048

REACTIONS (5)
  - BURNING SENSATION [None]
  - GLOSSODYNIA [None]
  - HEADACHE [None]
  - SWELLING FACE [None]
  - THROAT IRRITATION [None]
